FAERS Safety Report 4358039-0 (Version None)
Quarter: 2004Q2

REPORT INFORMATION
  Report Type: 
  Country: None (occurrence: None)
  Receive Date: 20040514
  Receipt Date: 20040506
  Transmission Date: 20050107
  Serious: Yes (Life-Threatening, Hospitalization)
  Sender: FDA-Public Use
  Company Number: 200411464EU

PATIENT
  Age: 66 Year
  Sex: Male

DRUGS (9)
  1. HYDROCORTISONE [Suspect]
     Indication: ASTHMA
  2. ALLOPURINOL TAB [Concomitant]
  3. ASPIRIN [Concomitant]
  4. NITROGLYCERIN [Concomitant]
  5. ALBUTEROL [Concomitant]
     Route: 055
  6. AMINOPHYLLINE [Concomitant]
  7. TERBUTALINE SULFATE [Concomitant]
     Route: 055
  8. IPRATROPIUM BROMIDE [Concomitant]
     Route: 055
  9. DEXTROMETHORPHAN HYDROBROMIDE [Concomitant]
     Indication: COUGH

REACTIONS (14)
  - ELECTROCARDIOGRAM ST SEGMENT DEPRESSION [None]
  - HYPOKALAEMIA [None]
  - HYPOVENTILATION [None]
  - LUNG HYPERINFLATION [None]
  - METABOLIC ALKALOSIS [None]
  - MUSCULAR WEAKNESS [None]
  - PALPITATIONS [None]
  - PITTING OEDEMA [None]
  - RESPIRATORY RATE INCREASED [None]
  - SYSTOLIC HYPERTENSION [None]
  - VENTRICULAR ARRHYTHMIA [None]
  - VENTRICULAR EXTRASYSTOLES [None]
  - WEIGHT INCREASED [None]
  - WHEEZING [None]
